FAERS Safety Report 9616839 (Version 1)
Quarter: 2013Q4

REPORT INFORMATION
  Report Type: Spontaneous
  Country: JP (occurrence: JP)
  Receive Date: 20131011
  Receipt Date: 20131011
  Transmission Date: 20140711
  Serious: Yes (Hospitalization)
  Sender: FDA-Public Use
  Company Number: JP-TEVA-435470ISR

PATIENT
  Age: 71 Year
  Sex: Female

DRUGS (2)
  1. TERMISIL TABLET 125 [Suspect]
     Dosage: 125 MILLIGRAM DAILY;
     Route: 048
     Dates: start: 201308, end: 20130918
  2. AROTINOLOL HYDROCHLORIDE [Concomitant]
     Dosage: 5 MILLIGRAM DAILY;
     Route: 048

REACTIONS (1)
  - Liver disorder [Not Recovered/Not Resolved]
